FAERS Safety Report 10100002 (Version 1)
Quarter: 2014Q2

REPORT INFORMATION
  Report Type: Spontaneous
  Country: GB (occurrence: GB)
  Receive Date: 20140423
  Receipt Date: 20140423
  Transmission Date: 20141212
  Serious: Yes (Other)
  Sender: FDA-Public Use
  Company Number: GB-ACTAVIS-2014-07849

PATIENT
  Age: 67 Year
  Sex: Male
  Weight: 82 kg

DRUGS (2)
  1. IBUPROFEN (UNKNOWN) [Suspect]
     Indication: INFLAMMATION
     Dosage: 2 DF, BID - 2 IN MORNING AND 2 IN EVENING.
     Route: 048
     Dates: start: 20140324, end: 20140329
  2. RAMIPRIL [Concomitant]
     Indication: PRODUCT USED FOR UNKNOWN INDICATION
     Dosage: 5 MG, DAILY
     Route: 065

REACTIONS (3)
  - Headache [Recovered/Resolved]
  - Abdominal pain upper [Recovered/Resolved]
  - Faeces discoloured [Recovered/Resolved]
